FAERS Safety Report 14814380 (Version 1)
Quarter: 2018Q2

REPORT INFORMATION
  Report Type: Spontaneous
  Country: AU (occurrence: AU)
  Receive Date: 20180426
  Receipt Date: 20180426
  Transmission Date: 20180711
  Serious: Yes (Hospitalization, Other)
  Sender: FDA-Public Use
  Company Number: AU-DRREDDYS-AUS/AUS/18/0098237

PATIENT
  Sex: Female
  Weight: 75 kg

DRUGS (3)
  1. COUMADIN [Concomitant]
     Active Substance: WARFARIN SODIUM
     Indication: PRODUCT USED FOR UNKNOWN INDICATION
  2. HYDROXYCHLOROQUINE [Concomitant]
     Active Substance: HYDROXYCHLOROQUINE
     Indication: PRODUCT USED FOR UNKNOWN INDICATION
  3. APOHEALTH-FEXOFENADINE 180 HAYFEVER + ALLERGY RELIEF [Suspect]
     Active Substance: FEXOFENADINE\FEXOFENADINE HYDROCHLORIDE
     Indication: PRODUCT USED FOR UNKNOWN INDICATION
     Dates: start: 20171101, end: 20180109

REACTIONS (10)
  - Pruritus generalised [None]
  - Product substitution issue [None]
  - Vision blurred [None]
  - Choking [None]
  - Blood pressure decreased [None]
  - Dizziness [None]
  - Product substitution issue [Unknown]
  - Syncope [None]
  - Anaphylactic reaction [Recovered/Resolved]
  - Hyperhidrosis [None]
